FAERS Safety Report 17873379 (Version 4)
Quarter: 2020Q3

REPORT INFORMATION
  Report Type: Spontaneous
  Country: FR (occurrence: FR)
  Receive Date: 20200609
  Receipt Date: 20200703
  Transmission Date: 20201103
  Serious: Yes (Other)
  Sender: FDA-Public Use
  Company Number: FR-AUROBINDO-AUR-APL-2020-027528

PATIENT
  Age: 16 Year
  Sex: Female

DRUGS (2)
  1. AMOXICILLIN. [Suspect]
     Active Substance: AMOXICILLIN
     Indication: ANGINA PECTORIS
     Dosage: UNK
     Route: 065
  2. AMOXICILLIN. [Suspect]
     Active Substance: AMOXICILLIN
     Indication: OROPHARYNGEAL PAIN

REACTIONS (16)
  - Systemic inflammatory response syndrome [Unknown]
  - Erythema [Unknown]
  - Conjunctivitis [Unknown]
  - Pyrexia [Recovered/Resolved]
  - Skin exfoliation [Unknown]
  - Coronary artery dilatation [Recovered/Resolved]
  - Lymphadenopathy [Unknown]
  - Thrombocytosis [Unknown]
  - Kawasaki^s disease [Recovering/Resolving]
  - Hyperleukocytosis [Unknown]
  - Rash [Unknown]
  - Product use in unapproved indication [Unknown]
  - Palmar-plantar erythrodysaesthesia syndrome [Unknown]
  - Hepatocellular injury [Unknown]
  - Rash pruritic [Unknown]
  - Cheilitis [Unknown]
